FAERS Safety Report 9836924 (Version 2)
Quarter: 2014Q1

REPORT INFORMATION
  Report Type: Spontaneous
  Country: US (occurrence: US)
  Receive Date: 20140123
  Receipt Date: 20140124
  Transmission Date: 20141002
  Serious: No
  Sender: FDA-Public Use
  Company Number: US-PFIZER INC-2014018607

PATIENT
  Age: 58 Year
  Sex: Female
  Weight: 134 kg

DRUGS (3)
  1. CELEBREX [Suspect]
     Indication: ARTHRALGIA
     Dosage: DAILY
     Dates: start: 201312, end: 20140112
  2. CELEBREX [Suspect]
     Indication: ARTHRITIS
  3. LOSARTAN [Concomitant]
     Indication: HYPERTENSION
     Dosage: DAILY

REACTIONS (3)
  - Local swelling [Not Recovered/Not Resolved]
  - Hypoaesthesia [Unknown]
  - Paraesthesia [Recovered/Resolved]
